FAERS Safety Report 23598748 (Version 1)
Quarter: 2024Q1

REPORT INFORMATION
  Report Type: Spontaneous
  Country: FR (occurrence: FR)
  Receive Date: 20240306
  Receipt Date: 20240306
  Transmission Date: 20240410
  Serious: Yes (Hospitalization)
  Sender: FDA-Public Use
  Company Number: None

PATIENT
  Age: 50 Year
  Sex: Male

DRUGS (3)
  1. CARBOPLATIN [Suspect]
     Active Substance: CARBOPLATIN
     Indication: Adenocarcinoma
     Dosage: DOSE UNIQUE?NR
     Dates: start: 20230609, end: 20230609
  2. PEMBROLIZUMAB [Suspect]
     Active Substance: PEMBROLIZUMAB
     Indication: Adenocarcinoma
     Dosage: NR
     Dates: start: 20230609
  3. ALIMTA [Suspect]
     Active Substance: PEMETREXED DISODIUM
     Indication: Adenocarcinoma
     Dosage: NR
     Dates: start: 20230609, end: 20230609

REACTIONS (3)
  - Sepsis [Recovered/Resolved]
  - Anaemia [Recovering/Resolving]
  - Neutropenia [Recovered/Resolved]

NARRATIVE: CASE EVENT DATE: 20230614
